FAERS Safety Report 6973265-X (Version None)
Quarter: 2010Q3

REPORT INFORMATION
  Report Type: 
  Country: None (occurrence: None)
  Receive Date: 20100909
  Receipt Date: 20100825
  Transmission Date: 20110219
  Serious: Yes (Other)
  Sender: FDA-Public Use
  Company Number: PHHY2010DE58915

PATIENT
  Sex: Female

DRUGS (3)
  1. EXJADE [Suspect]
     Indication: APLASTIC ANAEMIA
     Dosage: 750 MG, QD
     Route: 048
     Dates: start: 20100201
  2. SANDIMMUNE [Concomitant]
     Dosage: UNK
  3. ANTIBIOTICS [Concomitant]
     Dosage: UNK

REACTIONS (3)
  - BURNING SENSATION [None]
  - CYSTITIS [None]
  - URINARY TRACT DISORDER [None]
